FAERS Safety Report 6788597-8 (Version None)
Quarter: 2010Q2

REPORT INFORMATION
  Report Type: 
  Country: None (occurrence: None)
  Receive Date: 20100623
  Receipt Date: 20080509
  Transmission Date: 20101027
  Serious: Yes (Hospitalization, Other)
  Sender: FDA-Public Use
  Company Number: US-PFIZER INC-2008023563

PATIENT
  Sex: Male
  Weight: 68.5 kg

DRUGS (8)
  1. SUTENT [Suspect]
     Indication: RENAL CELL CARCINOMA
     Route: 048
     Dates: start: 20080219, end: 20080309
  2. GLYBURIDE [Concomitant]
  3. METFORMIN HCL [Concomitant]
  4. DILTIAZEM [Concomitant]
  5. ZOLOFT [Concomitant]
  6. VITAMIN E [Concomitant]
  7. METOLAZONE [Concomitant]
  8. OMEPRAZOLE [Concomitant]

REACTIONS (8)
  - ASPARTATE AMINOTRANSFERASE INCREASED [None]
  - BLOOD ALKALINE PHOSPHATASE INCREASED [None]
  - BLOOD CREATININE INCREASED [None]
  - BLOOD GLUCOSE INCREASED [None]
  - BLOOD UREA INCREASED [None]
  - HAEMATOCRIT DECREASED [None]
  - PANCREATITIS ACUTE [None]
  - RASH [None]
